FAERS Safety Report 17454825 (Version 1)
Quarter: 2020Q1

REPORT INFORMATION
  Report Type: Spontaneous
  Country: GB (occurrence: GB)
  Receive Date: 20200225
  Receipt Date: 20200225
  Transmission Date: 20200409
  Serious: Yes (Other)
  Sender: FDA-Public Use
  Company Number: GB-ADVANZ PHARMA-202002000951

PATIENT

DRUGS (13)
  1. PREDNISOLONE. [Suspect]
     Active Substance: PREDNISOLONE
     Indication: TEMPORAL ARTERITIS
     Dosage: 20 MG, QD,TAPPERED DOSE
  2. TAZOBACTAM/ PIPERACILLIN [Suspect]
     Active Substance: PIPERACILLIN SODIUM\TAZOBACTAM SODIUM
     Indication: PNEUMONIA PSEUDOMONAL
     Dosage: UNK
  3. CO-AMOXICLAV [Suspect]
     Active Substance: AMOXICILLIN\CLAVULANATE POTASSIUM
     Indication: PNEUMONIA PSEUDOMONAL
     Dosage: UNK
  4. AMOXICILLIN. [Suspect]
     Active Substance: AMOXICILLIN
     Indication: PNEUMONIA PSEUDOMONAL
     Dosage: UNK
  5. CEFTAZIDIME. [Suspect]
     Active Substance: CEFTAZIDIME
     Indication: PNEUMONIA PSEUDOMONAL
     Dosage: UNK
  6. CEFRADINE [Concomitant]
     Active Substance: CEPHRADINE
     Indication: PROPHYLAXIS URINARY TRACT INFECTION
     Dosage: UNK
  7. COLOMYCIN (COLISTIN) [Suspect]
     Active Substance: COLISTIN SULFATE
     Indication: PNEUMONIA PSEUDOMONAL
     Dosage: UNK
  8. TOBRAMYCIN. [Suspect]
     Active Substance: TOBRAMYCIN
     Indication: PNEUMONIA PSEUDOMONAL
     Dosage: UNK
  9. PREDNISOLONE. [Suspect]
     Active Substance: PREDNISOLONE
     Indication: RHEUMATOID ARTHRITIS
     Dosage: 9 MG, QD (TAPERED DOSE)
  10. MEROPENEM. [Suspect]
     Active Substance: MEROPENEM
     Indication: PNEUMONIA PSEUDOMONAL
     Dosage: UNK
  11. GENTAMICIN. [Suspect]
     Active Substance: GENTAMICIN
     Indication: PNEUMONIA PSEUDOMONAL
     Dosage: UNK
  12. DOXYCYCLINE. [Suspect]
     Active Substance: DOXYCYCLINE
     Indication: PNEUMONIA PSEUDOMONAL
     Dosage: UNK
  13. CEFACLOR. [Suspect]
     Active Substance: CEFACLOR
     Indication: PNEUMONIA PSEUDOMONAL
     Dosage: UNK

REACTIONS (3)
  - Urinary tract infection [Unknown]
  - Cataract [Unknown]
  - Drug intolerance [Unknown]
